FAERS Safety Report 23164094 (Version 1)
Quarter: 2023Q4

REPORT INFORMATION
  Report Type: Spontaneous
  Country: GB (occurrence: GB)
  Receive Date: 20231109
  Receipt Date: 20231109
  Transmission Date: 20240109
  Serious: Yes (Other)
  Sender: FDA-Public Use
  Company Number: GB-MYLANLABS-2023M1062574

PATIENT
  Age: 59 Year
  Sex: Female

DRUGS (15)
  1. MYCOPHENOLATE MOFETIL [Suspect]
     Active Substance: MYCOPHENOLATE MOFETIL
     Indication: Immune thrombocytopenia
     Dosage: 1 GRAM, BID (A THREE-MONTH TRIAL FROM DAY 70)
     Route: 065
  2. MYCOPHENOLATE MOFETIL [Suspect]
     Active Substance: MYCOPHENOLATE MOFETIL
     Indication: Thrombotic thrombocytopenic purpura
  3. MYCOPHENOLATE MOFETIL [Suspect]
     Active Substance: MYCOPHENOLATE MOFETIL
     Indication: Immunosuppressant drug therapy
  4. CYCLOSPORINE [Suspect]
     Active Substance: CYCLOSPORINE
     Indication: Immune thrombocytopenia
     Dosage: UNK, 3 MONTHS OF CICLOSPORIN WAS GIVEN
     Route: 065
  5. CYCLOSPORINE [Suspect]
     Active Substance: CYCLOSPORINE
     Indication: Thrombotic thrombocytopenic purpura
  6. CYCLOSPORINE [Suspect]
     Active Substance: CYCLOSPORINE
     Indication: Immunosuppressant drug therapy
  7. RITUXIMAB [Suspect]
     Active Substance: RITUXIMAB
     Indication: Immune thrombocytopenia
     Dosage: 375 MILLIGRAM/SQ. METER, TID (EVERY 3 DAYS SIX DOSES FROM DAY 2)
     Route: 065
  8. RITUXIMAB [Suspect]
     Active Substance: RITUXIMAB
     Indication: Thrombotic thrombocytopenic purpura
     Dosage: 375 MILLIGRAM/SQ. METER (2 DOSES OF RITUXIMAB WERE GIVEN ON DAY 105 AND DAY 108)
     Route: 065
  9. RITUXIMAB [Suspect]
     Active Substance: RITUXIMAB
     Indication: Immunosuppressant drug therapy
  10. CAPLACIZUMAB [Suspect]
     Active Substance: CAPLACIZUMAB
     Indication: Immune thrombocytopenia
     Dosage: 10 MILLIGRAM, QD (FROM DAY 2)
     Route: 058
  11. CAPLACIZUMAB [Suspect]
     Active Substance: CAPLACIZUMAB
     Indication: Thrombotic thrombocytopenic purpura
  12. CAPLACIZUMAB [Suspect]
     Active Substance: CAPLACIZUMAB
     Indication: Immunosuppressant drug therapy
  13. METHYLPREDNISOLONE [Suspect]
     Active Substance: METHYLPREDNISOLONE
     Indication: Immune thrombocytopenia
     Dosage: 1 GRAM, QD (FROM DAY 1 TO DAY 3)
     Route: 065
  14. METHYLPREDNISOLONE [Suspect]
     Active Substance: METHYLPREDNISOLONE
     Indication: Thrombotic thrombocytopenic purpura
  15. METHYLPREDNISOLONE [Suspect]
     Active Substance: METHYLPREDNISOLONE
     Indication: Immunosuppressant drug therapy

REACTIONS (1)
  - Drug ineffective [Unknown]
